FAERS Safety Report 5042134-7 (Version None)
Quarter: 2006Q2

REPORT INFORMATION
  Report Type: 
  Country: None (occurrence: None)
  Receive Date: 20060601
  Receipt Date: 20060329
  Transmission Date: 20061013
  Serious: No
  Sender: FDA-Public Use
  Company Number: 2006PV011114

PATIENT
  Age: 39 Year
  Sex: Female
  Weight: 90.7194 kg

DRUGS (1)
  1. BYETTA [Suspect]
     Indication: DIABETES MELLITUS
     Dosage: 5 MCG BID SC
     Route: 058
     Dates: start: 20060301

REACTIONS (1)
  - INJECTION SITE HAEMORRHAGE [None]
